FAERS Safety Report 22316869 (Version 1)
Quarter: 2023Q2

REPORT INFORMATION
  Report Type: Spontaneous
  Country: CN (occurrence: CN)
  Receive Date: 20230513
  Receipt Date: 20230513
  Transmission Date: 20230722
  Serious: Yes (Death, Other)
  Sender: FDA-Public Use
  Company Number: CN-AMGEN-CHNSP2023071957

PATIENT
  Age: 71 Year
  Sex: Female
  Weight: 45 kg

DRUGS (2)
  1. KYPROLIS [Suspect]
     Active Substance: CARFILZOMIB
     Indication: Plasma cell myeloma
     Dosage: 20 MILLIGRAM/SQ. METER
     Route: 065
     Dates: start: 202303
  2. KYPROLIS [Suspect]
     Active Substance: CARFILZOMIB
     Dosage: 27 MILLIGRAM/SQ. METER
     Route: 065
     Dates: start: 2023

REACTIONS (2)
  - Cardiac failure [Fatal]
  - Pericardial effusion [Unknown]

NARRATIVE: CASE EVENT DATE: 20230401
